FAERS Safety Report 10397005 (Version 1)
Quarter: 2014Q3

REPORT INFORMATION
  Report Type: Spontaneous
  Country: US (occurrence: None)
  Receive Date: 20140819
  Receipt Date: 20140819
  Transmission Date: 20150326
  Serious: Yes (Other)
  Sender: FDA-Public Use
  Company Number: None

PATIENT
  Age: 61 Year
  Sex: Female
  Weight: 62.6 kg

DRUGS (1)
  1. TOPIRAMATE. [Suspect]
     Active Substance: TOPIRAMATE
     Indication: DRUG THERAPY
     Route: 048
     Dates: start: 20140814, end: 20140815

REACTIONS (3)
  - Product substitution issue [None]
  - Headache [None]
  - Drug ineffective [None]

NARRATIVE: CASE EVENT DATE: 20140801
